FAERS Safety Report 11843944 (Version 1)
Quarter: 2015Q4

REPORT INFORMATION
  Report Type: Spontaneous
  Country: CA (occurrence: CA)
  Receive Date: 20151217
  Receipt Date: 20151217
  Transmission Date: 20160305
  Serious: Yes (Other)
  Sender: FDA-Public Use
  Company Number: CA-TEVA-614120ACC

PATIENT
  Age: 75 Year
  Sex: Female
  Weight: 98 kg

DRUGS (6)
  1. MOBICOX [Concomitant]
     Active Substance: MELOXICAM
  2. AMILORIDE/HYDROCHLO ROTHIAZIDE [Concomitant]
  3. DILTIAZEM [Concomitant]
     Active Substance: DILTIAZEM
  4. PREVACID [Concomitant]
     Active Substance: LANSOPRAZOLE
  5. RATIO-IRBESARTAN [Suspect]
     Active Substance: IRBESARTAN
     Indication: HYPERTENSION
     Dosage: 150 MILLIGRAM DAILY;
     Route: 048
  6. LIPITOR [Concomitant]
     Active Substance: ATORVASTATIN CALCIUM

REACTIONS (2)
  - Pharyngeal oedema [Recovered/Resolved]
  - Throat irritation [Recovered/Resolved]
